FAERS Safety Report 13565394 (Version 8)
Quarter: 2017Q3

REPORT INFORMATION
  Report Type: Spontaneous
  Country: KR (occurrence: KR)
  Receive Date: 20170519
  Receipt Date: 20170808
  Transmission Date: 20171127
  Serious: Yes (Hospitalization, Other)
  Sender: FDA-Public Use
  Company Number: KR-009507513-1705KOR008502

PATIENT
  Age: 64 Year
  Sex: Male

DRUGS (26)
  1. SOLONDO [Concomitant]
     Active Substance: PREDNISOLONE
     Indication: KERATOPATHY
     Dosage: 10 MG, QD
     Route: 048
     Dates: start: 20161022, end: 20161226
  2. SOLETON [Concomitant]
     Active Substance: ZALTOPROFEN
     Indication: PROCEDURAL PAIN
     Dosage: 80 MG, TID
     Route: 048
     Dates: start: 20160914, end: 20161226
  3. EMEND (FOSAPREPITANT DIMEGLUMINE) [Suspect]
     Active Substance: FOSAPREPITANT DIMEGLUMINE
     Dosage: 150 MG, ONCE, CYCLE 2
     Route: 042
     Dates: start: 20170124, end: 20170124
  4. MANNITOL. [Concomitant]
     Active Substance: MANNITOL
     Indication: PREMEDICATION
     Dosage: 100 ML, ONCE
     Route: 042
     Dates: start: 20161128, end: 20161128
  5. HARNAL [Concomitant]
     Active Substance: TAMSULOSIN HYDROCHLORIDE
     Indication: PROPHYLAXIS
     Dosage: 0.2 MG, QD
     Route: 048
     Dates: start: 20161130
  6. ALAXYL [Concomitant]
     Active Substance: PLANTAGO SEED\SENNA LEAF
     Indication: CONSTIPATION PROPHYLAXIS
     Dosage: 1 DF, ONCE
     Route: 048
     Dates: start: 20161202, end: 20161202
  7. DEXAMETHASONE SODIUM PHOSPHATE. [Concomitant]
     Active Substance: DEXAMETHASONE SODIUM PHOSPHATE
     Dosage: 8 MG, ONCE; STRENGTH 5MG/ML
     Route: 042
     Dates: start: 20161129, end: 20161201
  8. SCD RANITIDINE [Concomitant]
     Indication: PROPHYLAXIS AGAINST GASTROINTESTINAL ULCER
     Dosage: 150 MG, BID
     Route: 048
     Dates: start: 20161102, end: 20170109
  9. LASIX [Concomitant]
     Active Substance: FUROSEMIDE
     Dosage: 20 MG, ONCE; STRENGTH 20MG/2ML
     Route: 042
     Dates: start: 20170124, end: 20170124
  10. CISPLATIN. [Concomitant]
     Active Substance: CISPLATIN
     Indication: CHEMOTHERAPY
     Dosage: 126 MG, ONCE; CYCLE 1; STRENGTH 50MG/100ML
     Route: 042
     Dates: start: 20161128, end: 20161128
  11. SANCUSO [Concomitant]
     Active Substance: GRANISETRON
     Indication: ANTIEMETIC SUPPORTIVE CARE
     Dosage: 1 DF, QD
     Route: 062
     Dates: start: 20161127, end: 20161203
  12. BARACLUDE [Concomitant]
     Active Substance: ENTECAVIR
     Indication: HEPATITIS B
     Dosage: 0.5 MG, QD
     Route: 048
     Dates: start: 20161123, end: 20161202
  13. CISPLATIN. [Concomitant]
     Active Substance: CISPLATIN
     Dosage: 100 MG, ONCE; CYCLE 2; STRENGTH 50MG/100ML
     Route: 042
     Dates: start: 20170124, end: 20170124
  14. DEXAMETHASONE SODIUM PHOSPHATE. [Concomitant]
     Active Substance: DEXAMETHASONE SODIUM PHOSPHATE
     Indication: ANTIEMETIC SUPPORTIVE CARE
     Dosage: 12 MG, ONCE; STRENGTH 5MG/ML
     Route: 042
     Dates: start: 20161128, end: 20161128
  15. ANYCOUGH [Concomitant]
     Active Substance: THEOBROMINE
     Indication: PROPHYLAXIS
     Dosage: 300 MG, BID
     Route: 048
     Dates: start: 20161117, end: 20161226
  16. CEFMETAZOLE SODIUM [Concomitant]
     Active Substance: CEFMETAZOLE SODIUM
     Indication: PREMEDICATION
     Dosage: 1 G, ONCE
     Route: 042
     Dates: start: 20161125, end: 20161125
  17. FLUOROURACIL. [Concomitant]
     Active Substance: FLUOROURACIL
     Indication: CHEMOTHERAPY
     Dosage: 2028 MG, QD; CYCLE 1; STRENGTH 1000MG/20ML
     Route: 042
     Dates: start: 20161128, end: 20161201
  18. DEXAMETHASONE SODIUM PHOSPHATE. [Concomitant]
     Active Substance: DEXAMETHASONE SODIUM PHOSPHATE
     Dosage: 12 MG, ONCE; STRENGTH 5MG/ML
     Route: 042
     Dates: start: 20170124, end: 20170124
  19. EMEND (FOSAPREPITANT DIMEGLUMINE) [Suspect]
     Active Substance: FOSAPREPITANT DIMEGLUMINE
     Indication: PROPHYLAXIS OF NAUSEA AND VOMITING
     Dosage: 150 MG, ONCE, CYCLE 1
     Route: 042
     Dates: start: 20161128, end: 20161128
  20. ENTELON [Concomitant]
     Indication: PROCEDURAL PAIN
     Dosage: 150 MG, BID
     Route: 048
     Dates: start: 20161104
  21. MEGESTROL ACETATE. [Concomitant]
     Active Substance: MEGESTROL ACETATE
     Indication: PROPHYLAXIS
     Dosage: 625 MG, QD
     Route: 048
     Dates: start: 20160914, end: 20161231
  22. FLUOROURACIL. [Concomitant]
     Active Substance: FLUOROURACIL
     Dosage: 1520 MG, QD; CYCLE 2; STRENGTH 1000MG/20ML
     Route: 042
     Dates: start: 20170124, end: 20170127
  23. DEXAMETHASONE SODIUM PHOSPHATE. [Concomitant]
     Active Substance: DEXAMETHASONE SODIUM PHOSPHATE
     Dosage: 8 MG, ONCE; STRENGTH 5MG/ML
     Route: 042
     Dates: start: 20170125, end: 20170125
  24. LASIX [Concomitant]
     Active Substance: FUROSEMIDE
     Indication: PREMEDICATION
     Dosage: 20 MG, QD; STRENGTH 20MG/2ML
     Route: 042
     Dates: start: 20161128, end: 20161129
  25. MANNITOL. [Concomitant]
     Active Substance: MANNITOL
     Dosage: 100 ML, ONCE
     Route: 042
     Dates: start: 20170124, end: 20170124
  26. SCD MAGNESIUM OXIDE [Concomitant]
     Indication: CONSTIPATION PROPHYLAXIS
     Dosage: 250 MG, TID
     Route: 048
     Dates: start: 20161202, end: 20161203

REACTIONS (8)
  - Sepsis [Recovered/Resolved]
  - Device related infection [Recovered/Resolved]
  - Compression fracture [Recovered/Resolved]
  - Stomatitis [Recovered/Resolved]
  - Blood creatinine increased [Recovered/Resolved]
  - Hypokalaemia [Recovered/Resolved]
  - Hiccups [Recovered/Resolved]
  - Back pain [Recovered/Resolved]

NARRATIVE: CASE EVENT DATE: 20161208
